FAERS Safety Report 24542904 (Version 1)
Quarter: 2024Q4

REPORT INFORMATION
  Report Type: Spontaneous
  Country: RO (occurrence: RO)
  Receive Date: 20241024
  Receipt Date: 20241024
  Transmission Date: 20250115
  Serious: Yes (Other)
  Sender: ROCHE
  Company Number: RO-ROCHE-10000109392

PATIENT
  Age: 60 Year
  Sex: Female

DRUGS (13)
  1. ATEZOLIZUMAB [Suspect]
     Active Substance: ATEZOLIZUMAB
     Indication: Small cell lung cancer
     Dosage: 6 SERIES
     Route: 065
     Dates: start: 202208
  2. ATEZOLIZUMAB [Suspect]
     Active Substance: ATEZOLIZUMAB
     Dosage: (MAINTENANCE)
     Route: 065
     Dates: start: 202302
  3. ATEZOLIZUMAB [Suspect]
     Active Substance: ATEZOLIZUMAB
     Dosage: 6 SERIES-BS
     Route: 065
     Dates: start: 202208, end: 202302
  4. CARBOPLATIN [Suspect]
     Active Substance: CARBOPLATIN
     Indication: Small cell lung cancer
     Dosage: AUC 5 - D1
     Route: 065
     Dates: start: 202009, end: 202105
  5. CARBOPLATIN [Suspect]
     Active Substance: CARBOPLATIN
     Dosage: AUC 5 - D1
     Route: 065
     Dates: start: 202208
  6. CARBOPLATIN [Suspect]
     Active Substance: CARBOPLATIN
     Dosage: 6 SERIES
     Route: 065
     Dates: start: 202009, end: 202106
  7. CARBOPLATIN [Suspect]
     Active Substance: CARBOPLATIN
     Dosage: 6 SERIES-BS
     Route: 065
     Dates: start: 202208, end: 202302
  8. ETOPOSIDE [Suspect]
     Active Substance: ETOPOSIDE
     Indication: Small cell lung cancer
     Dosage: D1-D3
     Route: 065
     Dates: start: 202009, end: 202105
  9. ETOPOSIDE [Suspect]
     Active Substance: ETOPOSIDE
     Dosage: D1-D3
     Route: 065
     Dates: start: 202208
  10. ETOPOSIDE [Suspect]
     Active Substance: ETOPOSIDE
     Dosage: 6 SERIES
     Route: 065
     Dates: start: 202009, end: 202106
  11. ETOPOSIDE [Suspect]
     Active Substance: ETOPOSIDE
     Dosage: 6 SERIES BS
     Route: 065
     Dates: start: 202208, end: 202302
  12. PEGFILGRASTIM [Concomitant]
     Active Substance: PEGFILGRASTIM
     Indication: Prophylaxis
     Dosage: D4
  13. AKYNZEO [FOSNETUPITANT CHLORIDE HYDROCHLORIDE;PALONOSETRON HYDROCHLORI [Concomitant]
     Dosage: 300 MG/0.5 MG D1

REACTIONS (2)
  - Thrombocytopenia [Unknown]
  - Metastases to central nervous system [Unknown]

NARRATIVE: CASE EVENT DATE: 20230501
